FAERS Safety Report 14511694 (Version 4)
Quarter: 2018Q2

REPORT INFORMATION
  Report Type: Spontaneous
  Country: US (occurrence: US)
  Receive Date: 20180209
  Receipt Date: 20180625
  Transmission Date: 20180711
  Serious: Yes (Life-Threatening, Hospitalization)
  Sender: FDA-Public Use
  Company Number: US-ASTRAZENECA-2018SE15688

PATIENT
  Age: 12994 Day
  Sex: Male
  Weight: 79.4 kg

DRUGS (16)
  1. XIGDUO XR [Suspect]
     Active Substance: DAPAGLIFLOZIN PROPANEDIOL\METFORMIN HYDROCHLORIDE
     Indication: DIABETES MELLITUS
     Route: 048
  2. GLUCOTROL [Concomitant]
     Active Substance: GLIPIZIDE
  3. FARXIGA [Suspect]
     Active Substance: DAPAGLIFLOZIN PROPANEDIOL
     Indication: DIABETES MELLITUS
     Route: 048
     Dates: start: 20160509
  4. ACTOS [Concomitant]
     Active Substance: PIOGLITAZONE HYDROCHLORIDE
     Dates: start: 20160125
  5. PROTONIX [Concomitant]
     Active Substance: PANTOPRAZOLE SODIUM
     Dates: start: 20160127
  6. VICTOZA [Concomitant]
     Active Substance: LIRAGLUTIDE
     Dosage: 18MG/3ML SOLUTION, 1.8 MG ONCE A DAY
     Dates: start: 20160125
  7. GLIPIZIDE. [Concomitant]
     Active Substance: GLIPIZIDE
     Dates: start: 20160125
  8. LIPITOR [Concomitant]
     Active Substance: ATORVASTATIN CALCIUM
     Route: 048
     Dates: start: 20160208
  9. ZESTRIL/PRINIVIL [Concomitant]
     Dosage: 2.5MG UNKNOWN
     Dates: start: 20160208
  10. GABAPENTIN. [Concomitant]
     Active Substance: GABAPENTIN
     Dosage: 300.0MG UNKNOWN
     Dates: start: 20160606
  11. FARXIGA [Suspect]
     Active Substance: DAPAGLIFLOZIN PROPANEDIOL
     Indication: DIABETES MELLITUS
     Route: 048
     Dates: start: 20140107, end: 20160127
  12. LASIX [Concomitant]
     Active Substance: FUROSEMIDE
     Dosage: 40.0MG UNKNOWN
     Dates: start: 20160208
  13. LISINOPRIL. [Concomitant]
     Active Substance: LISINOPRIL
     Dates: start: 20160125
  14. PRILOSEC [Concomitant]
     Active Substance: OMEPRAZOLE MAGNESIUM
     Route: 048
     Dates: start: 20160208
  15. METFORMIN [Concomitant]
     Active Substance: METFORMIN HYDROCHLORIDE
     Indication: DIABETES MELLITUS
     Dates: start: 20160125
  16. FARXIGA [Suspect]
     Active Substance: DAPAGLIFLOZIN PROPANEDIOL
     Indication: DIABETES MELLITUS
     Route: 048
     Dates: start: 20140703

REACTIONS (12)
  - Carpal tunnel syndrome [Unknown]
  - Renal injury [Unknown]
  - Hypertension [Unknown]
  - Diabetic neuropathy [Unknown]
  - Oedema [Unknown]
  - Pain in extremity [Unknown]
  - Dyspnoea [Unknown]
  - Blood cholesterol increased [Unknown]
  - Diabetic ketoacidosis [Recovering/Resolving]
  - Type IIa hyperlipidaemia [Unknown]
  - Acute kidney injury [Unknown]
  - Abdominal pain lower [Unknown]

NARRATIVE: CASE EVENT DATE: 20151214
